FAERS Safety Report 7334396-8 (Version None)
Quarter: 2011Q1

REPORT INFORMATION
  Report Type: 
  Country: None (occurrence: None)
  Receive Date: 20110307
  Receipt Date: 20110223
  Transmission Date: 20110831
  Serious: Yes (Hospitalization)
  Sender: FDA-Public Use
  Company Number: PHHY2011JP14926

PATIENT

DRUGS (2)
  1. PHENOBARBITAL [Concomitant]
     Indication: CONVULSION
     Dosage: UNK UKN, UNK
  2. TEGRETOL [Suspect]
     Indication: CONVULSION
     Dosage: UNK UKN, UNK

REACTIONS (3)
  - PNEUMATOSIS INTESTINALIS [None]
  - TOXIC EPIDERMAL NECROLYSIS [None]
  - SEPTIC SHOCK [None]
